FAERS Safety Report 14185633 (Version 2)
Quarter: 2017Q4

REPORT INFORMATION
  Report Type: Spontaneous
  Country: US (occurrence: US)
  Receive Date: 20171114
  Receipt Date: 20171115
  Transmission Date: 20180321
  Serious: Yes (Other)
  Sender: FDA-Public Use
  Company Number: US-PFIZER INC-2017484120

PATIENT
  Age: 80 Year
  Sex: Female
  Weight: 68.95 kg

DRUGS (2)
  1. LYRICA [Suspect]
     Active Substance: PREGABALIN
     Indication: FIBROMYALGIA
     Dosage: 100 MG, 2X/DAY
     Dates: start: 2015
  2. LYRICA [Suspect]
     Active Substance: PREGABALIN
     Indication: NEUROPATHY PERIPHERAL

REACTIONS (4)
  - Blindness unilateral [Unknown]
  - Cerebrovascular accident [Unknown]
  - Visual impairment [Unknown]
  - Kidney infection [Unknown]

NARRATIVE: CASE EVENT DATE: 2016
